FAERS Safety Report 4531262-8 (Version None)
Quarter: 2004Q4

REPORT INFORMATION
  Report Type: 
  Country: None (occurrence: None)
  Receive Date: 20041126
  Receipt Date: 20041029
  Transmission Date: 20050328
  Serious: Yes (Other)
  Sender: FDA-Public Use
  Company Number: 140609USA

PATIENT
  Sex: Female

DRUGS (1)
  1. TAMOXIFEN CITRATE [Suspect]
     Indication: BREAST CANCER
     Dates: start: 20010201, end: 20040601

REACTIONS (5)
  - HEPATIC CANCER METASTATIC [None]
  - LIVER FUNCTION TEST ABNORMAL [None]
  - LYMPH NODE CANCER METASTATIC [None]
  - MASS [None]
  - THROMBOSIS [None]
